FAERS Safety Report 8583773-6 (Version None)
Quarter: 2012Q3

REPORT INFORMATION
  Report Type: 
  Country: None (occurrence: None)
  Receive Date: 20120810
  Receipt Date: 20120727
  Transmission Date: 20120928
  Serious: Yes (Other)
  Sender: FDA-Public Use
  Company Number: JP-009507513-1207JPN012795

PATIENT

DRUGS (2)
  1. DOXAZOSIN MESYLATE [Concomitant]
     Dosage: DAILY DOSAGE UNKNOWN
     Route: 048
  2. ZETIA [Suspect]
     Indication: HYPERCHOLESTEROLAEMIA
     Route: 048

REACTIONS (1)
  - DRUG ERUPTION [None]
